FAERS Safety Report 7084477-1 (Version None)
Quarter: 2010Q4

REPORT INFORMATION
  Report Type: 
  Country: None (occurrence: None)
  Receive Date: 20101104
  Receipt Date: 20101029
  Transmission Date: 20110411
  Serious: Yes (Hospitalization, Other)
  Sender: FDA-Public Use
  Company Number: AU-PFIZER INC-2010139554

PATIENT
  Age: 45 Year
  Sex: Female

DRUGS (1)
  1. CHAMPIX [Suspect]
     Indication: SMOKING CESSATION THERAPY
     Dosage: 1.0 MG, 2X/DAY

REACTIONS (4)
  - EMOTIONAL DISTRESS [None]
  - HALLUCINATION [None]
  - PSYCHOTIC DISORDER [None]
  - SUICIDAL BEHAVIOUR [None]
